FAERS Safety Report 8444025 (Version 3)
Quarter: 2013Q2

REPORT INFORMATION
  Report Type: Spontaneous
  Country: FR (occurrence: None)
  Receive Date: 20120228
  Receipt Date: 20130515
  Transmission Date: 20140414
  Serious: Yes (Hospitalization, Other)
  Sender: FDA-Public Use
  Company Number: JPI-P-002633

PATIENT
  Age: 62 Year
  Sex: Male

DRUGS (5)
  1. XYREM [Suspect]
     Indication: NARCOLEPSY
     Route: 048
     Dates: start: 20070927
  2. XYREM [Suspect]
     Indication: DYSSOMNIA
     Route: 048
     Dates: start: 20070927
  3. ACARBOSE [Concomitant]
  4. PIOGLITAZONE HYDROCHLORIDE [Concomitant]
  5. UNSPECIFIED TREATMENT FOR DIABETES [Concomitant]

REACTIONS (6)
  - MIDDLE INSOMNIA [None]
  - MUSCLE SPASMS [None]
  - DRY SKIN [None]
  - PRURITUS [None]
  - SLEEP APNOEA SYNDROME [None]
  - PROSTHESIS IMPLANTATION [None]
